FAERS Safety Report 9216064 (Version 1)
Quarter: 2013Q2

REPORT INFORMATION
  Report Type: Spontaneous
  Country: JP (occurrence: JP)
  Receive Date: 20130408
  Receipt Date: 20130408
  Transmission Date: 20140414
  Serious: No
  Sender: FDA-Public Use
  Company Number: JP-JNJFOC-20130308880

PATIENT
  Age: 8 Decade
  Sex: Male

DRUGS (1)
  1. NICORETTE 2 MG [Suspect]
     Indication: SMOKING CESSATION THERAPY
     Dosage: 7-8 GUMS/DAY IN THE BEGINNING OF THE THERAPY AND 10 GUMS/DAY AT THE TIME OF REPORT
     Route: 002

REACTIONS (2)
  - Intentional drug misuse [Unknown]
  - Obesity [Not Recovered/Not Resolved]
